APPROVED DRUG PRODUCT: MAVIK
Active Ingredient: TRANDOLAPRIL
Strength: 2MG **Federal Register determination that product was not discontinued or withdrawn for safety or effectiveness reasons**
Dosage Form/Route: TABLET;ORAL
Application: N020528 | Product #002
Applicant: ABBVIE INC
Approved: Apr 26, 1996 | RLD: Yes | RS: No | Type: DISCN